FAERS Safety Report 20423772 (Version 1)
Quarter: 2022Q1

REPORT INFORMATION
  Report Type: Spontaneous
  Country: US (occurrence: US)
  Receive Date: 20220203
  Receipt Date: 20220203
  Transmission Date: 20220423
  Serious: Yes (Hospitalization)
  Sender: FDA-Public Use
  Company Number: US-BRISTOL-MYERS SQUIBB COMPANY-BMS-2022-015148

PATIENT
  Age: 18 Year
  Sex: Female

DRUGS (7)
  1. ORENCIA [Suspect]
     Active Substance: ABATACEPT
     Indication: Raynaud^s phenomenon
     Dosage: 125 MILLIGRAM, QWK
     Route: 058
     Dates: start: 20201125
  2. ORENCIA [Suspect]
     Active Substance: ABATACEPT
     Indication: Raynaud^s phenomenon
     Dosage: 125 MILLIGRAM, QWK
     Route: 058
     Dates: start: 20201125
  3. ORENCIA [Suspect]
     Active Substance: ABATACEPT
     Indication: Peripheral vascular disorder
  4. ORENCIA [Suspect]
     Active Substance: ABATACEPT
     Indication: Peripheral vascular disorder
  5. ORENCIA [Suspect]
     Active Substance: ABATACEPT
     Indication: Systemic scleroderma
  6. ORENCIA [Suspect]
     Active Substance: ABATACEPT
     Indication: Systemic scleroderma
  7. NIVESTYM [FILGRASTIM] [Concomitant]
     Indication: Product used for unknown indication
     Dosage: 645 MICROGRAM
     Route: 065

REACTIONS (2)
  - Hospitalisation [Unknown]
  - Intentional product use issue [Unknown]
